FAERS Safety Report 14658282 (Version 1)
Quarter: 2018Q1

REPORT INFORMATION
  Report Type: Report from Study
  Country: CZ (occurrence: CZ)
  Receive Date: 20180320
  Receipt Date: 20180320
  Transmission Date: 20180509
  Serious: Yes (Other)
  Sender: FDA-Public Use
  Company Number: CZ-BAUSCH-BL-2018-007001

PATIENT
  Age: 81 Year
  Sex: Female

DRUGS (2)
  1. IMNOVID [Suspect]
     Active Substance: POMALIDOMIDE
     Indication: PLASMA CELL MYELOMA
     Route: 048
     Dates: start: 20160407
  2. DEXAMETHASONE. [Suspect]
     Active Substance: DEXAMETHASONE
     Indication: PLASMA CELL MYELOMA
     Route: 065
     Dates: start: 20160407

REACTIONS (1)
  - Infection [Unknown]
